FAERS Safety Report 9712414 (Version 1)
Quarter: 2013Q4

REPORT INFORMATION
  Report Type: Spontaneous
  Country: US (occurrence: None)
  Receive Date: 20131122
  Receipt Date: 20131122
  Transmission Date: 20140711
  Serious: Yes (Hospitalization)
  Sender: FDA-Public Use
  Company Number: 2013P1021056

PATIENT
  Age: 79 Year
  Sex: Female

DRUGS (3)
  1. DONEPEZIL [Suspect]
     Indication: MAJOR DEPRESSION
  2. MIRTAZAPINE [Suspect]
     Indication: MAJOR DEPRESSION
  3. ESZOPICLONE [Suspect]
     Indication: MAJOR DEPRESSION
     Dosage: 2 MG;QD

REACTIONS (8)
  - Depression [None]
  - Acute psychosis [None]
  - Confusional state [None]
  - Delusion [None]
  - Incoherent [None]
  - Encephalopathy [None]
  - Electroencephalogram abnormal [None]
  - Agitation [None]
